FAERS Safety Report 11308982 (Version 2)
Quarter: 2015Q3

REPORT INFORMATION
  Report Type: Spontaneous
  Country: JP (occurrence: JP)
  Receive Date: 20150724
  Receipt Date: 20150819
  Transmission Date: 20151125
  Serious: Yes (Life-Threatening, Other)
  Sender: FDA-Public Use
  Company Number: JP-PFIZER INC-2015236582

PATIENT
  Age: 88 Year
  Sex: Male

DRUGS (19)
  1. ALBUMIN [Suspect]
     Active Substance: ALBUMIN (HUMAN)
     Indication: DIURETIC THERAPY
     Dosage: UNK
     Dates: start: 20150619, end: 20150624
  2. CARBOCISTEINE [Concomitant]
     Active Substance: CARBOCYSTEINE
     Dosage: UNK
     Route: 048
  3. BIO-THREE [Concomitant]
     Active Substance: HERBALS
     Dosage: UNK
     Route: 048
  4. BFLUID [Concomitant]
     Active Substance: AMINO ACIDS\DEXTROSE\ELECTROLYTES NOS\VITAMINS
     Dosage: UNK
     Route: 041
  5. ZOSYN [Suspect]
     Active Substance: PIPERACILLIN SODIUM\TAZOBACTAM SODIUM
     Dosage: 6.75 G, 3X/DAY (EVERY 8 HOURS)
     Route: 041
     Dates: start: 20150606, end: 20150611
  6. URSO [Concomitant]
     Active Substance: URSODIOL
     Dosage: UNK
     Route: 048
  7. CEFDINIR. [Concomitant]
     Active Substance: CEFDINIR
     Dosage: UNK
     Route: 048
  8. AMBROXOL HYDROCHLORIDE [Concomitant]
     Active Substance: AMBROXOL HYDROCHLORIDE
     Dosage: UNK
     Route: 048
  9. FUROSEMIDE. [Concomitant]
     Active Substance: FUROSEMIDE
     Dosage: UNK
     Route: 048
  10. MUCOFILIN [Concomitant]
     Dosage: UNK
  11. VITAMEDIN [Concomitant]
     Active Substance: CYANOCOBALAMIN\PYRIDOXINE HYDROCHLORIDE\THIAMINE
     Dosage: UNK
     Route: 042
  12. CASODEX [Concomitant]
     Active Substance: BICALUTAMIDE
     Dosage: UNK
     Route: 048
  13. ZOSYN [Suspect]
     Active Substance: PIPERACILLIN SODIUM\TAZOBACTAM SODIUM
     Indication: PNEUMONIA ASPIRATION
     Dosage: 4.5 G, 3X/DAY (EVERY 8 HOURS)
     Route: 041
     Dates: start: 20150601, end: 20150605
  14. CALCIUM LACTATE HYDRATE [Concomitant]
     Active Substance: CALCIUM LACTATE
     Dosage: UNK
  15. LASIX [Concomitant]
     Active Substance: FUROSEMIDE
     Dosage: UNK
     Route: 042
  16. GLUCONSAN K [Concomitant]
     Dosage: UNK
     Route: 048
  17. FAMOTIDINE D [Concomitant]
     Active Substance: FAMOTIDINE
     Dosage: UNK
     Route: 048
  18. MINOPHAGEN C [Concomitant]
     Dosage: UNK
     Route: 042
  19. KCL CORRECTIVE [Concomitant]
     Dosage: UNK
     Route: 041

REACTIONS (3)
  - Acute kidney injury [Recovering/Resolving]
  - Stevens-Johnson syndrome [Recovering/Resolving]
  - Urinary retention [Recovering/Resolving]

NARRATIVE: CASE EVENT DATE: 20150601
